FAERS Safety Report 5974211-8 (Version None)
Quarter: 2008Q4

REPORT INFORMATION
  Report Type: 
  Country: None (occurrence: None)
  Receive Date: 20081201
  Receipt Date: 20081125
  Transmission Date: 20090506
  Serious: Yes (Other)
  Sender: FDA-Public Use
  Company Number: FR-PFIZER INC-2008083828

PATIENT
  Sex: Male

DRUGS (6)
  1. LYRICA [Suspect]
     Indication: NEURALGIA
     Route: 048
     Dates: start: 20080831
  2. INSULIN [Concomitant]
  3. TRINITRINE [Concomitant]
     Indication: ISCHAEMIC CARDIOMYOPATHY
     Dates: start: 20080812
  4. SEROPRAM [Concomitant]
     Indication: DEPRESSION
     Route: 048
     Dates: start: 20080905
  5. LASIX [Concomitant]
     Indication: CARDIAC FAILURE
     Route: 048
     Dates: start: 20080812
  6. PREVISCAN [Concomitant]
     Indication: ARTERITIS OBLITERANS
     Route: 048
     Dates: start: 20080905

REACTIONS (3)
  - DYSPNOEA [None]
  - LEFT VENTRICULAR FAILURE [None]
  - TREMOR [None]
